FAERS Safety Report 9728486 (Version 1)
Quarter: 2013Q4

REPORT INFORMATION
  Report Type: Spontaneous
  Country: US (occurrence: None)
  Receive Date: 20131203
  Receipt Date: 20131203
  Transmission Date: 20140711
  Serious: Yes (Other)
  Sender: FDA-Public Use
  Company Number: None

PATIENT
  Age: 31 Year
  Sex: Male
  Weight: 92.53 kg

DRUGS (4)
  1. KETOROLAC TROMETHAMINE [Suspect]
     Indication: BACK PAIN
     Dosage: 60MG/2ML ONCE INTRAMUSCULAR
     Route: 030
     Dates: start: 20131126
  2. MOTRIN [Concomitant]
  3. TYLENOL [Concomitant]
  4. BAYER [Concomitant]

REACTIONS (4)
  - Dizziness [None]
  - Dizziness [None]
  - Dysgeusia [None]
  - Feeling abnormal [None]
